FAERS Safety Report 15888439 (Version 1)
Quarter: 2019Q1

REPORT INFORMATION
  Report Type: Spontaneous
  Country: FR (occurrence: FR)
  Receive Date: 20190130
  Receipt Date: 20190130
  Transmission Date: 20190417
  Serious: Yes (Hospitalization)
  Sender: FDA-Public Use
  Company Number: FR-BAYER-200610155BFR

PATIENT
  Age: 56 Year
  Sex: Female

DRUGS (21)
  1. NATULAN [Suspect]
     Active Substance: PROCARBAZINE HYDROCHLORIDE
     Indication: HODGKIN^S DISEASE
     Dosage: 4 DOSAGE FORM
     Route: 048
     Dates: start: 20051017, end: 20051023
  2. MOPRAL [OMEPRAZOLE] [Concomitant]
     Indication: UNEVALUABLE EVENT
     Route: 048
     Dates: start: 20051009, end: 20051102
  3. LASILIX [FUROSEMIDE] [Concomitant]
     Active Substance: FUROSEMIDE
     Indication: UNEVALUABLE EVENT
     Route: 048
  4. HEPARINE [HEPARIN] [Concomitant]
     Indication: UNEVALUABLE EVENT
     Dosage: UNK
     Route: 065
     Dates: start: 20051009
  5. SOLUPRED [METHYLPREDNISOLONE SODIUM SUCCINATE] [Concomitant]
     Active Substance: METHYLPREDNISOLONE SODIUM SUCCINATE
     Indication: UNEVALUABLE EVENT
     Dosage: UNK
     Route: 065
     Dates: start: 20051009
  6. ATARAX [Concomitant]
     Active Substance: HYDROXYZINE HYDROCHLORIDE
     Indication: URTICARIA
     Dosage: 50 MG, QD
     Route: 048
     Dates: start: 20051024, end: 20051026
  7. PERFALGAN [Suspect]
     Active Substance: ACETAMINOPHEN
     Indication: VIRAL INFECTION
     Dosage: 3 G (DAILY DOSE), TID, INTRAVENOUS
     Route: 042
     Dates: start: 20051009, end: 20051012
  8. PERFALGAN [Suspect]
     Active Substance: ACETAMINOPHEN
     Indication: VIRAL INFECTION
     Dosage: 3 G (DAILY DOSE), TID, INTRAVENOUS
     Route: 042
     Dates: start: 20051017, end: 20051018
  9. ATARAX [Concomitant]
     Active Substance: HYDROXYZINE HYDROCHLORIDE
     Indication: URTICARIA
     Dosage: 50 MG, QD
     Route: 048
     Dates: start: 20051009, end: 20051013
  10. NATULAN [Suspect]
     Active Substance: PROCARBAZINE HYDROCHLORIDE
     Indication: HODGKIN^S DISEASE
     Dosage: UNK, QD
     Route: 048
     Dates: start: 20051017, end: 20051023
  11. ONCOVIN [Suspect]
     Active Substance: VINCRISTINE SULFATE
     Indication: HODGKIN^S DISEASE
     Dosage: UNK
     Route: 042
     Dates: start: 20051003, end: 20051004
  12. KALEORID [Concomitant]
     Active Substance: POTASSIUM CHLORIDE
     Indication: UNEVALUABLE EVENT
     Dosage: UNK, QD
     Route: 048
  13. CHLORMETHINE [Concomitant]
     Active Substance: MECHLORETHAMINE
     Indication: UNEVALUABLE EVENT
     Dosage: UNK
     Route: 065
     Dates: end: 200510
  14. CIFLOX [Suspect]
     Active Substance: CIPROFLOXACIN
     Indication: PYREXIA
     Dosage: 400 MG, QD
     Route: 042
     Dates: start: 20051009, end: 20051011
  15. PERFALGAN [Suspect]
     Active Substance: ACETAMINOPHEN
     Indication: VIRAL INFECTION
     Dosage: 3 G (DAILY DOSE), TID, INTRAVENOUS
     Route: 042
     Dates: start: 20051102, end: 20051103
  16. CORTANCYL [Concomitant]
     Active Substance: PREDNISONE
     Indication: UNEVALUABLE EVENT
     Dosage: UNK
     Route: 065
     Dates: end: 200510
  17. ATARAX [Concomitant]
     Active Substance: HYDROXYZINE HYDROCHLORIDE
     Indication: URTICARIA
     Dosage: 50 MG, QD
     Route: 048
     Dates: start: 20051028, end: 20051031
  18. NATULAN [Suspect]
     Active Substance: PROCARBAZINE HYDROCHLORIDE
     Indication: HODGKIN^S DISEASE
     Dosage: UNK, QD
     Route: 048
     Dates: start: 20051003, end: 20051008
  19. ONCOVIN [Suspect]
     Active Substance: VINCRISTINE SULFATE
     Indication: HODGKIN^S DISEASE
     Dosage: UNK
     Route: 042
     Dates: start: 20051017, end: 20051018
  20. PERFALGAN [Suspect]
     Active Substance: ACETAMINOPHEN
     Indication: VIRAL INFECTION
     Dosage: 3 G (DAILY DOSE), TID, INTRAVENOUS
     Route: 042
     Dates: start: 20051018, end: 20051020
  21. AUGMENTIN [Concomitant]
     Active Substance: AMOXICILLIN\CLAVULANATE POTASSIUM
     Indication: UNEVALUABLE EVENT
     Dosage: 3 G, QD
     Route: 065
     Dates: start: 20051009, end: 20051011

REACTIONS (7)
  - Rash [Recovered/Resolved]
  - Cough [Recovered/Resolved]
  - Pyrexia [Recovered/Resolved]
  - Drug eruption [Recovered/Resolved]
  - Toxic skin eruption [Recovered/Resolved]
  - Interstitial lung disease [Recovered/Resolved]
  - Dyspnoea [Recovered/Resolved]

NARRATIVE: CASE EVENT DATE: 20051010
